FAERS Safety Report 12341899 (Version 3)
Quarter: 2018Q2

REPORT INFORMATION
  Report Type: Spontaneous
  Country: GR (occurrence: GR)
  Receive Date: 20160506
  Receipt Date: 20180424
  Transmission Date: 20180711
  Serious: Yes (Hospitalization, Other)
  Sender: FDA-Public Use
  Company Number: GR-VALIDUS PHARMACEUTICALS LLC-GR-2016VAL001243

PATIENT
  Age: 70 Year
  Sex: Male

DRUGS (17)
  1. RAMIPRIL. [Suspect]
     Active Substance: RAMIPRIL
     Indication: DRUG THERAPY
  2. CARVEDILOL. [Suspect]
     Active Substance: CARVEDILOL
     Indication: CARDIAC FAILURE
     Dosage: UNK
     Route: 065
  3. EPLERENONE. [Suspect]
     Active Substance: EPLERENONE
     Indication: HYPERTENSION
  4. FUROSEMIDE. [Suspect]
     Active Substance: FUROSEMIDE
     Indication: CARDIAC FAILURE
     Dosage: UNK
     Route: 065
  5. EPLERENONE. [Suspect]
     Active Substance: EPLERENONE
     Indication: DIURETIC THERAPY
  6. RAMIPRIL. [Suspect]
     Active Substance: RAMIPRIL
     Indication: CARDIAC FAILURE
     Dosage: UNK
     Route: 065
  7. CARVEDILOL. [Suspect]
     Active Substance: CARVEDILOL
     Indication: DRUG THERAPY
  8. NITROGLYCERINE [Suspect]
     Active Substance: NITROGLYCERIN
     Indication: CARDIAC FAILURE
  9. CARVEDILOL. [Suspect]
     Active Substance: CARVEDILOL
     Indication: HYPERTENSION
  10. EPLERENONE. [Suspect]
     Active Substance: EPLERENONE
     Indication: CARDIAC FAILURE
     Dosage: UNK
     Route: 065
  11. RIVAROXABAN [Suspect]
     Active Substance: RIVAROXABAN
     Indication: CARDIAC FAILURE
     Dosage: UNK
     Route: 065
  12. RIVAROXABAN [Suspect]
     Active Substance: RIVAROXABAN
     Indication: ATRIAL FIBRILLATION
  13. DIGOXIN. [Suspect]
     Active Substance: DIGOXIN
     Indication: CARDIAC FAILURE
     Dosage: UNK
     Route: 065
  14. FUROSEMIDE. [Suspect]
     Active Substance: FUROSEMIDE
     Indication: HYPERTENSION
  15. RAMIPRIL. [Suspect]
     Active Substance: RAMIPRIL
     Indication: HYPERTENSION
  16. NITROGLYCERINE [Suspect]
     Active Substance: NITROGLYCERIN
     Indication: NITRATE COMPOUND THERAPY
     Dosage: UNK
     Route: 065
  17. FUROSEMIDE. [Suspect]
     Active Substance: FUROSEMIDE
     Indication: DIURETIC THERAPY

REACTIONS (21)
  - Pulmonary arterial pressure increased [Unknown]
  - Jugular vein distension [Unknown]
  - Tricuspid valve incompetence [Unknown]
  - Dyspnoea [Unknown]
  - Disease progression [Unknown]
  - Treatment failure [Unknown]
  - Abdominal rigidity [Unknown]
  - Drug ineffective [Unknown]
  - Mitral valve incompetence [Unknown]
  - Orthopnoea [Unknown]
  - Cardiac murmur [Unknown]
  - Arrhythmia [Unknown]
  - Atrial fibrillation [Unknown]
  - Liver palpable [Unknown]
  - Cardiac failure [Unknown]
  - Fatigue [Unknown]
  - Ejection fraction decreased [Unknown]
  - Renal impairment [Unknown]
  - Bundle branch block left [Unknown]
  - Blood creatinine increased [Unknown]
  - Normochromic normocytic anaemia [Unknown]
